FAERS Safety Report 5737916-X (Version None)
Quarter: 2008Q2

REPORT INFORMATION
  Report Type: 
  Country: None (occurrence: None)
  Receive Date: 20080509
  Receipt Date: 20080430
  Transmission Date: 20081010
  Serious: Yes (Death)
  Sender: FDA-Public Use
  Company Number: MSTR-NO-0805S-0018

PATIENT
  Sex: Male
  Weight: 43.3 kg

DRUGS (9)
  1. METASTRON [Suspect]
     Indication: METASTATIC PAIN
     Dosage: SINGLE DOSE, I.V.
     Route: 042
     Dates: start: 20080229, end: 20080229
  2. ZOLEDRONIC ACID [Concomitant]
  3. LOXOPROFEN [Concomitant]
  4. MORPHINE HCL ELIXIR [Concomitant]
  5. FLURBIPROFEN AXETIL [Concomitant]
  6. MELOXICAM [Concomitant]
  7. ACETAMINOPHEN [Concomitant]
  8. NAPROXEN [Concomitant]
  9. MINOCYCLINE HYDROCHLORIDE [Concomitant]

REACTIONS (2)
  - ASTHENIA [None]
  - MALIGNANT NEOPLASM PROGRESSION [None]
